FAERS Safety Report 19355421 (Version 2)
Quarter: 2021Q2

REPORT INFORMATION
  Report Type: Report from Study
  Country: US (occurrence: US)
  Receive Date: 20210531
  Receipt Date: 20210622
  Transmission Date: 20210717
  Serious: Yes (Other)
  Sender: FDA-Public Use
  Company Number: NVSC2021US116239

PATIENT
  Sex: Male

DRUGS (2)
  1. JARDIANCE [Suspect]
     Active Substance: EMPAGLIFLOZIN
     Indication: PRODUCT USED FOR UNKNOWN INDICATION
     Dosage: UNK
     Route: 065
  2. ENTRESTO [Suspect]
     Active Substance: SACUBITRIL\VALSARTAN
     Indication: PRODUCT USED FOR UNKNOWN INDICATION
     Dosage: UNK, BID
     Route: 048

REACTIONS (11)
  - Blood glucose abnormal [Unknown]
  - Rhinorrhoea [Unknown]
  - Ear pain [Unknown]
  - Cardiac failure [Unknown]
  - Pancreatic failure [Unknown]
  - Oral candidiasis [Not Recovered/Not Resolved]
  - Tongue exfoliation [Unknown]
  - Headache [Unknown]
  - Oral discomfort [Unknown]
  - Oral pain [Unknown]
  - Sneezing [Unknown]
